FAERS Safety Report 24696281 (Version 1)
Quarter: 2024Q4

REPORT INFORMATION
  Report Type: Other
  Country: IN (occurrence: IN)
  Receive Date: 20241204
  Receipt Date: 20241204
  Transmission Date: 20250115
  Serious: Yes (Hospitalization)
  Sender: ORBION PHARMACEUTICALS PRIVATE LIMITED
  Company Number: IN-OrBion Pharmaceuticals Private Limited-2166468

PATIENT
  Age: 81 Year
  Sex: Male

DRUGS (2)
  1. MEMANTINE HYDROCHLORIDE [Suspect]
     Active Substance: MEMANTINE HYDROCHLORIDE
     Indication: Dementia Alzheimer^s type
     Dates: start: 202307
  2. DONEPEZIL [Suspect]
     Active Substance: DONEPEZIL
     Dates: start: 202303

REACTIONS (1)
  - Atrioventricular block second degree [Recovered/Resolved]
